FAERS Safety Report 20430270 (Version 1)
Quarter: 2022Q1

REPORT INFORMATION
  Report Type: Report from Study
  Country: FR (occurrence: FR)
  Receive Date: 20220204
  Receipt Date: 20220204
  Transmission Date: 20220423
  Serious: Yes (Hospitalization)
  Sender: FDA-Public Use
  Company Number: FR-SERVIER-S20004720

PATIENT

DRUGS (6)
  1. ONCASPAR [Suspect]
     Active Substance: PEGASPARGASE
     Indication: Acute lymphocytic leukaemia
     Dosage: 965 IU, DAY 4
     Route: 042
     Dates: start: 20181129, end: 20181129
  2. TN UNSPECIFIED [Concomitant]
     Indication: Acute lymphocytic leukaemia
     Dosage: 0.8 MG, DAY 1, DAY 8, DAY 15
     Route: 042
     Dates: start: 20181126, end: 20181210
  3. TN UNSPECIFIED [Concomitant]
     Indication: Acute lymphocytic leukaemia
     Dosage: 19.3 MG, DAY 1, DAY 8 AND DAY 15
     Route: 042
     Dates: start: 20181126, end: 20181210
  4. TN UNSPECIFIED [Concomitant]
     Indication: Acute lymphocytic leukaemia
     Dosage: 12 MG, DAY 4
     Route: 037
     Dates: start: 20181129, end: 20181129
  5. TN UNSPECIFIED [Concomitant]
     Indication: Acute lymphocytic leukaemia
     Dosage: 7.5 MG, DAY 1 TO DAY 15
     Route: 048
     Dates: start: 20181127, end: 20181211
  6. BACTRIM [Concomitant]
     Active Substance: SULFAMETHOXAZOLE\TRIMETHOPRIM
     Indication: Antibiotic prophylaxis
     Dosage: 600 MG, QD
     Route: 048
     Dates: start: 20181205

REACTIONS (1)
  - Urinary tract infection [Recovered/Resolved]

NARRATIVE: CASE EVENT DATE: 20181221
